FAERS Safety Report 4782294-6 (Version None)
Quarter: 2005Q3

REPORT INFORMATION
  Report Type: 
  Country: None (occurrence: None)
  Receive Date: 20050914
  Receipt Date: 20050511
  Transmission Date: 20060218
  Serious: Yes (Hospitalization)
  Sender: FDA-Public Use
  Company Number: 163-20785-05050181

PATIENT
  Age: 20 Month
  Sex: Male

DRUGS (2)
  1. THALOMID [Suspect]
     Indication: BRAIN NEOPLASM
     Dosage: 300 MG QD ORAL
     Route: 048
  2. TEMODAR [Suspect]
     Indication: BRAIN NEOPLASM
     Dosage: 80 MG, QD X 5 DAYS, PO
     Route: 048

REACTIONS (1)
  - STREPTOCOCCAL BACTERAEMIA [None]
